FAERS Safety Report 4887012-9 (Version None)
Quarter: 2006Q1

REPORT INFORMATION
  Report Type: 
  Country: None (occurrence: None)
  Receive Date: 20060118
  Receipt Date: 20060106
  Transmission Date: 20060701
  Serious: Yes (Hospitalization)
  Sender: FDA-Public Use
  Company Number: US016425

PATIENT
  Age: 60 Year
  Sex: Female
  Weight: 68.0396 kg

DRUGS (9)
  1. TRISENOX [Suspect]
     Indication: MYELODYSPLASTIC SYNDROME
     Dosage: 17.04 MG QD INTRAVENOUS DRIP
     Route: 041
     Dates: start: 20051107, end: 20051111
  2. TRISENOX [Suspect]
     Indication: MYELODYSPLASTIC SYNDROME
     Dosage: 17.04 MG Q72HR INTRAVENOUS DRIP
     Route: 041
     Dates: start: 20051112, end: 20051117
  3. THALIDOMIDE [Suspect]
     Indication: MYELODYSPLASTIC SYNDROME
     Dosage: 100 MG QHS ORAL
     Route: 048
     Dates: start: 20051107, end: 20051127
  4. DEXAMETHASONE TAB [Suspect]
     Indication: MYELODYSPLASTIC SYNDROME
     Dosage: 4 MG QD ORAL
     Route: 048
     Dates: start: 20051107, end: 20051111
  5. FOSAMAX [Concomitant]
  6. FLEXERIL [Concomitant]
  7. LUNESTA [Concomitant]
  8. BACTRIM DS [Concomitant]
  9. ASCORBIC ACID [Concomitant]

REACTIONS (8)
  - ASTHENIA [None]
  - BACK PAIN [None]
  - FATIGUE [None]
  - FLUID RETENTION [None]
  - HERPES ZOSTER [None]
  - NEUTROPHIL COUNT INCREASED [None]
  - PYREXIA [None]
  - RASH [None]
